FAERS Safety Report 6956190-X (Version None)
Quarter: 2010Q3

REPORT INFORMATION
  Report Type: 
  Country: None (occurrence: None)
  Receive Date: 20100830
  Receipt Date: 20100824
  Transmission Date: 20110219
  Serious: Yes (Death, Hospitalization)
  Sender: FDA-Public Use
  Company Number: PHFR2010IE02305

PATIENT
  Sex: Male

DRUGS (1)
  1. CLOZARIL [Suspect]
     Indication: SCHIZOPHRENIA
     Dosage: UNK
     Route: 048
     Dates: start: 20080926

REACTIONS (8)
  - COUGH [None]
  - DYSPNOEA [None]
  - HYPOTENSION [None]
  - MALAISE [None]
  - PNEUMONIA [None]
  - PYREXIA [None]
  - SYNCOPE [None]
  - URINARY TRACT INFECTION [None]
